FAERS Safety Report 5496188-4 (Version None)
Quarter: 2007Q4

REPORT INFORMATION
  Report Type: 
  Country: None (occurrence: None)
  Receive Date: 20071025
  Receipt Date: 20071022
  Transmission Date: 20080405
  Serious: Yes (Hospitalization, Other)
  Sender: FDA-Public Use
  Company Number: FR-BRISTOL-MYERS SQUIBB COMPANY-13951819

PATIENT
  Age: 75 Year
  Sex: Male

DRUGS (5)
  1. ELISOR [Suspect]
     Dates: start: 20060401
  2. HEPARIN [Suspect]
     Dates: start: 20060327, end: 20060406
  3. KARDEGIC [Suspect]
     Dates: start: 20060401
  4. CORDARONE [Suspect]
     Dates: start: 20060330
  5. LASIX [Suspect]
     Dates: start: 20060404

REACTIONS (3)
  - ATRIAL FIBRILLATION [None]
  - ISCHAEMIC STROKE [None]
  - THROMBOCYTOPENIA [None]
